FAERS Safety Report 19531495 (Version 2)
Quarter: 2025Q4

REPORT INFORMATION
  Report Type: Spontaneous
  Country: EU (occurrence: EU)
  Receive Date: 20210713
  Receipt Date: 20251013
  Transmission Date: 20260118
  Serious: Yes (Other)
  Sender: PFIZER
  Company Number: None

PATIENT
  Age: 55 Year
  Sex: Male
  Weight: 62 kg

DRUGS (14)
  1. LANSOPRAZOLE [Suspect]
     Active Substance: LANSOPRAZOLE
     Dosage: 30 MILLIGRAM, QD
     Route: 048
     Dates: start: 20210419
  2. PIPERACILLIN SODIUM\TAZOBACTAM SODIUM [Suspect]
     Active Substance: PIPERACILLIN SODIUM\TAZOBACTAM SODIUM
     Indication: Sinusitis
     Dosage: 4 GRAM, Q6HR
     Route: 042
     Dates: start: 20210427, end: 20210504
  3. AMITRIPTYLINE HYDROCHLORIDE [Suspect]
     Active Substance: AMITRIPTYLINE HYDROCHLORIDE
     Dosage: UNK, 15 TO 30 DROPS PER DAY
     Route: 048
     Dates: start: 20210429, end: 20210506
  4. POSACONAZOLE [Suspect]
     Active Substance: POSACONAZOLE
     Indication: Mucormycosis
     Dosage: 100 MILLIGRAM, QD
     Route: 048
     Dates: start: 20210515, end: 20210519
  5. CEFAZOLIN [Suspect]
     Active Substance: CEFAZOLIN
     Indication: Sinusitis
     Dosage: 1 GRAM, Q8HR
     Route: 030
     Dates: start: 20210513
  6. AMBISOME [Suspect]
     Active Substance: AMPHOTERICIN B
     Indication: Mucormycosis
     Dosage: 650 MILLIGRAM, QD
     Route: 042
     Dates: start: 20210427, end: 20210514
  7. LOVENOX [Suspect]
     Active Substance: ENOXAPARIN SODIUM
     Indication: Thrombosis prophylaxis
     Dosage: 4000 INTERNATIONAL UNIT, QD
     Route: 058
     Dates: start: 20210428
  8. DAPTOMYCIN [Suspect]
     Active Substance: DAPTOMYCIN
     Indication: Sinusitis
     Dosage: 500 MILLIGRAM, QD
     Route: 042
     Dates: start: 20210413, end: 20210416
  9. HYDROCHLORIC ACID [Suspect]
     Active Substance: HYDROCHLORIC ACID
     Dosage: UNK
  10. SODIUM HYDROXIDE [Suspect]
     Active Substance: SODIUM HYDROXIDE
     Dosage: UNK
  11. SUCROSE [Suspect]
     Active Substance: SUCROSE
     Dosage: UNK
  12. SODIUM SUCCINATE [Suspect]
     Active Substance: SODIUM SUCCINATE HEXAHYDRATE
     Dosage: UNK
  13. DIETARY SUPPLEMENT [Suspect]
     Active Substance: DIETARY SUPPLEMENT
     Indication: Mucormycosis
     Dosage: 650 MG, 10 MG/KG
     Route: 042
     Dates: start: 20210427, end: 20210514
  14. DIETARY SUPPLEMENT [Suspect]
     Active Substance: DIETARY SUPPLEMENT
     Dosage: 550 MG

REACTIONS (1)
  - Cholestasis [Recovered/Resolved]

NARRATIVE: CASE EVENT DATE: 20210519
